FAERS Safety Report 19501968 (Version 1)
Quarter: 2021Q3

REPORT INFORMATION
  Report Type: Spontaneous
  Country: US (occurrence: US)
  Receive Date: 20210706
  Receipt Date: 20210706
  Transmission Date: 20211014
  Serious: Yes (Hospitalization)
  Sender: FDA-Public Use
  Company Number: None

PATIENT
  Sex: Female

DRUGS (17)
  1. HUMIRA [Suspect]
     Active Substance: ADALIMUMAB
     Indication: CROHN^S DISEASE
     Route: 058
     Dates: start: 20180328
  2. KETOCONAZOLE SHA [Concomitant]
  3. OMEPRAZOLE. [Concomitant]
     Active Substance: OMEPRAZOLE
  4. OZMEPIC [Concomitant]
  5. HYDROXYCHLOR [Concomitant]
     Active Substance: HYDROXYCHLOROQUINE
  6. LOSARTAN POT [Concomitant]
     Active Substance: LOSARTAN POTASSIUM
  7. CLONAZEPAM. [Concomitant]
     Active Substance: CLONAZEPAM
  8. DILTIAZEM ER [Concomitant]
     Active Substance: DILTIAZEM
  9. TIMOLOL MAL OP [Concomitant]
  10. HUMULIN R [Concomitant]
     Active Substance: INSULIN HUMAN
  11. HYDROCO/APAP [Concomitant]
     Active Substance: ACETAMINOPHEN\HYDROCODONE
  12. METFORMIN [Concomitant]
     Active Substance: METFORMIN HYDROCHLORIDE
  13. MICROGESTIN [Concomitant]
     Active Substance: ETHINYL ESTRADIOL\NORETHINDRONE ACETATE
  14. OLANZAPINE. [Concomitant]
     Active Substance: OLANZAPINE
  15. DULOXETINE. [Concomitant]
     Active Substance: DULOXETINE
  16. METOPROL SUC ER [Concomitant]
     Active Substance: METOPROLOL SUCCINATE
  17. PAROXETINE. [Concomitant]
     Active Substance: PAROXETINE

REACTIONS (3)
  - Headache [None]
  - Injection related reaction [None]
  - Intentional dose omission [None]
